FAERS Safety Report 17199901 (Version 2)
Quarter: 2020Q2

REPORT INFORMATION
  Report Type: Spontaneous
  Country: DE (occurrence: DE)
  Receive Date: 20191226
  Receipt Date: 20200416
  Transmission Date: 20200713
  Serious: Yes (Other)
  Sender: FDA-Public Use
  Company Number: DE-ROCHE-2507333

PATIENT
  Sex: Female

DRUGS (1)
  1. SOMATROPIN. [Suspect]
     Active Substance: SOMATROPIN
     Indication: TURNER^S SYNDROME
     Dosage: 0.035 OT, (15 MG/1.5 ML)
     Route: 058
     Dates: start: 20171120

REACTIONS (5)
  - Injection site haematoma [Recovered/Resolved]
  - Seizure [Recovered/Resolved]
  - Somatic symptom disorder [Not Recovered/Not Resolved]
  - Aggression [Not Recovered/Not Resolved]
  - Renal dysplasia [Not Recovered/Not Resolved]

NARRATIVE: CASE EVENT DATE: 201803
